FAERS Safety Report 12392274 (Version 1)
Quarter: 2016Q2

REPORT INFORMATION
  Report Type: Spontaneous
  Country: US (occurrence: US)
  Receive Date: 20160523
  Receipt Date: 20160523
  Transmission Date: 20160815
  Serious: Yes (Other)
  Sender: FDA-Public Use
  Company Number: US-BEH-2016062912

PATIENT
  Sex: Female
  Weight: 87 kg

DRUGS (29)
  1. HIZENTRA [Suspect]
     Active Substance: HUMAN IMMUNOGLOBULIN G
  2. ATROVENT [Concomitant]
     Active Substance: IPRATROPIUM BROMIDE
  3. ADVAIR HFA [Concomitant]
     Active Substance: FLUTICASONE PROPIONATE\SALMETEROL XINAFOATE
  4. PRENATAL COMPLETE [Concomitant]
  5. CORTEF [Concomitant]
     Active Substance: HYDROCORTISONE
  6. HIZENTRA [Suspect]
     Active Substance: HUMAN IMMUNOGLOBULIN G
  7. HIZENTRA [Suspect]
     Active Substance: HUMAN IMMUNOGLOBULIN G
  8. ACETAMINOPHEN. [Concomitant]
     Active Substance: ACETAMINOPHEN
  9. TOPIRAMATE. [Concomitant]
     Active Substance: TOPIRAMATE
  10. POTASSIUM [Concomitant]
     Active Substance: POTASSIUM
  11. FOLIC ACID. [Concomitant]
     Active Substance: FOLIC ACID
  12. WELLBUTRIN [Concomitant]
     Active Substance: BUPROPION HYDROCHLORIDE
  13. EPIPEN [Concomitant]
     Active Substance: EPINEPHRINE
  14. VIACTIV [Concomitant]
     Active Substance: CALCIUM\VITAMIN D\VITAMIN K5
  15. HIZENTRA [Suspect]
     Active Substance: HUMAN IMMUNOGLOBULIN G
     Indication: PRODUCT USED FOR UNKNOWN INDICATION
  16. HYDROCHLOROTHIAZIDE. [Concomitant]
     Active Substance: HYDROCHLOROTHIAZIDE
  17. IRON [Concomitant]
     Active Substance: IRON
  18. HIZENTRA [Suspect]
     Active Substance: HUMAN IMMUNOGLOBULIN G
     Route: 058
  19. QVAR [Concomitant]
     Active Substance: BECLOMETHASONE DIPROPIONATE
  20. CELEBREX [Concomitant]
     Active Substance: CELECOXIB
  21. CHOLECALCIFEROL [Concomitant]
     Active Substance: CHOLECALCIFEROL
  22. VITAMIN B12 [Concomitant]
     Active Substance: CYANOCOBALAMIN
  23. PANTOPRAZOLE [Concomitant]
     Active Substance: PANTOPRAZOLE SODIUM
  24. DIPHENHYDRAMINE. [Concomitant]
     Active Substance: DIPHENHYDRAMINE
  25. XOLAIR [Concomitant]
     Active Substance: OMALIZUMAB
  26. CITALOPRAM [Concomitant]
     Active Substance: CITALOPRAM HYDROBROMIDE
  27. LIDOCAINE. [Concomitant]
     Active Substance: LIDOCAINE
  28. PLAQUENIL [Concomitant]
     Active Substance: HYDROXYCHLOROQUINE SULFATE
  29. SINGULAIR [Concomitant]
     Active Substance: MONTELUKAST SODIUM

REACTIONS (3)
  - Headache [Unknown]
  - Pneumonia mycoplasmal [Unknown]
  - Pain [Unknown]
